FAERS Safety Report 20472421 (Version 1)
Quarter: 2022Q1

REPORT INFORMATION
  Report Type: Spontaneous
  Country: US (occurrence: US)
  Receive Date: 20220215
  Receipt Date: 20220215
  Transmission Date: 20220423
  Serious: Yes (Hospitalization, Other)
  Sender: FDA-Public Use
  Company Number: US-SANOFI-00970705

PATIENT
  Age: 43 Year
  Sex: Female

DRUGS (1)
  1. DUPIXENT [Suspect]
     Active Substance: DUPILUMAB

REACTIONS (8)
  - Cholangitis [Unknown]
  - Pneumonia [Unknown]
  - Pancreatic carcinoma [Unknown]
  - Keratitis [Unknown]
  - Conjunctival hyperaemia [Unknown]
  - Gallbladder disorder [Unknown]
  - Illness [Unknown]
  - Hepatic enzyme increased [Unknown]
